FAERS Safety Report 8055247-2 (Version None)
Quarter: 2012Q1

REPORT INFORMATION
  Report Type: 
  Country: None (occurrence: None)
  Receive Date: 20120119
  Receipt Date: 20120113
  Transmission Date: 20120608
  Serious: Yes (Hospitalization, Other)
  Sender: FDA-Public Use
  Company Number: FR-ASTELLAS-2012EU000393

PATIENT
  Age: 66 Year
  Sex: Male

DRUGS (12)
  1. ALLOPURINOL [Concomitant]
     Dosage: UNK
     Route: 065
  2. NEXIUM [Concomitant]
     Dosage: UNK
     Route: 065
  3. DELURSAN [Concomitant]
     Dosage: UNK
     Route: 065
  4. PROGRAF [Suspect]
     Indication: LIVER TRANSPLANT
     Dosage: 2 DF, BID
     Route: 048
     Dates: start: 20110820
  5. SODIUM POLYSTYRENE SULFONATE [Concomitant]
     Dosage: UNK
     Route: 065
  6. ASPIRIN [Concomitant]
     Dosage: UNK
     Route: 065
  7. GLUCOPHAGE [Concomitant]
     Dosage: UNK
     Route: 065
  8. BACTRIM [Concomitant]
     Dosage: UNK
     Route: 065
  9. INSULINE [Concomitant]
     Dosage: UNK
     Route: 065
  10. MYCOPHENOLATE MOFETIL (CELLCEPT) [Suspect]
     Indication: LIVER TRANSPLANT
     Dosage: 2 DF, BID
     Route: 048
     Dates: start: 20110820
  11. PREDNISOLONE [Suspect]
     Indication: LIVER TRANSPLANT
     Dosage: 1 DF, UID/QD
     Route: 048
  12. GANCICLOVIR SODIUM [Concomitant]
     Dosage: UNK
     Route: 065

REACTIONS (4)
  - RENAL FAILURE ACUTE [None]
  - PANCYTOPENIA [None]
  - EPSTEIN-BARR VIRAEMIA [None]
  - SEPTIC SHOCK [None]
